FAERS Safety Report 4929991-7 (Version None)
Quarter: 2006Q1

REPORT INFORMATION
  Report Type: 
  Country: None (occurrence: None)
  Receive Date: 20060302
  Receipt Date: 20060221
  Transmission Date: 20060701
  Serious: Yes (Other)
  Sender: FDA-Public Use
  Company Number: PHBS2006IE02728

PATIENT
  Age: 80 Year
  Sex: Male

DRUGS (10)
  1. STALEVO 100 [Suspect]
     Indication: PARKINSON'S DISEASE
     Dosage: 450 MG/D
     Route: 048
     Dates: start: 20051219, end: 20060110
  2. SEROQUEL [Concomitant]
  3. COMBIVENT [Concomitant]
  4. GLUCOPHAGE [Concomitant]
  5. FRUSEMIDE [Concomitant]
  6. SALAZOPYRIN [Concomitant]
  7. DIAMICRON MR [Concomitant]
  8. PREDNISOLONE [Concomitant]
  9. CAPRIN [Concomitant]
  10. MOVICOL [Concomitant]

REACTIONS (2)
  - DYSTONIA [None]
  - MUSCLE CONTRACTIONS INVOLUNTARY [None]
